FAERS Safety Report 16540871 (Version 2)
Quarter: 2019Q3

REPORT INFORMATION
  Report Type: Spontaneous
  Country: US (occurrence: US)
  Receive Date: 20190708
  Receipt Date: 20190709
  Transmission Date: 20191004
  Serious: No
  Sender: FDA-Public Use
  Company Number: US-SA-2019SA183159

PATIENT
  Sex: Female

DRUGS (1)
  1. PRALUENT [Suspect]
     Active Substance: ALIROCUMAB
     Indication: HYPERLIPIDAEMIA
     Dosage: 150 MG, QOW
     Route: 058
     Dates: start: 20190522

REACTIONS (9)
  - Rash [Unknown]
  - Unevaluable event [Unknown]
  - Vision blurred [Unknown]
  - Injection site pruritus [Unknown]
  - Pruritus [Unknown]
  - Urticaria [Unknown]
  - Neck pain [Unknown]
  - Injection site erythema [Unknown]
  - Hypoaesthesia oral [Unknown]
